FAERS Safety Report 9269065 (Version 1)
Quarter: 2013Q2

REPORT INFORMATION
  Report Type: Spontaneous
  Country: BE (occurrence: BE)
  Receive Date: 20130503
  Receipt Date: 20130503
  Transmission Date: 20140414
  Serious: Yes (Life-Threatening)
  Sender: FDA-Public Use
  Company Number: BE-ROCHE-1220772

PATIENT
  Age: 70 Year
  Sex: Male
  Weight: 55 kg

DRUGS (8)
  1. BONVIVA [Suspect]
     Indication: PRODUCT USED FOR UNKNOWN INDICATION
     Route: 065
  2. TILDIEM [Concomitant]
     Route: 048
  3. EMCONCOR [Concomitant]
     Route: 048
  4. ASAFLOW [Concomitant]
     Route: 065
  5. SPIRONOLACTONE [Concomitant]
     Route: 048
  6. TOTALIP [Concomitant]
     Route: 065
  7. SERETIDE [Concomitant]
  8. SPIRIVA [Concomitant]

REACTIONS (1)
  - Cardio-respiratory arrest [Recovered/Resolved]
